FAERS Safety Report 16440711 (Version 4)
Quarter: 2019Q3

REPORT INFORMATION
  Report Type: Report from Study
  Country: US (occurrence: US)
  Receive Date: 20190617
  Receipt Date: 20190922
  Transmission Date: 20191004
  Serious: No
  Sender: FDA-Public Use
  Company Number: PHEH2019US025088

PATIENT
  Age: 56 Year
  Sex: Female

DRUGS (1)
  1. GLATOPA [Suspect]
     Active Substance: GLATIRAMER ACETATE
     Indication: PRODUCT USED FOR UNKNOWN INDICATION
     Dosage: 40 MG, 3 TIMES A WEEK
     Route: 058
     Dates: start: 20190321

REACTIONS (8)
  - Pigmentation disorder [Unknown]
  - Muscle spasms [Unknown]
  - Fatigue [Unknown]
  - Injection site swelling [Unknown]
  - Skin discolouration [Unknown]
  - Spinal osteoarthritis [Unknown]
  - Back pain [Unknown]
  - Condition aggravated [Unknown]

NARRATIVE: CASE EVENT DATE: 20190506
